FAERS Safety Report 15893679 (Version 1)
Quarter: 2019Q1

REPORT INFORMATION
  Report Type: Spontaneous
  Country: FR (occurrence: FR)
  Receive Date: 20190131
  Receipt Date: 20190131
  Transmission Date: 20190417
  Serious: Yes (Other)
  Sender: FDA-Public Use
  Company Number: FR-SUN PHARMACEUTICAL INDUSTRIES LTD-2019RR-197642

PATIENT
  Age: 47 Year
  Sex: Male

DRUGS (1)
  1. OLANZAPINE. [Suspect]
     Active Substance: OLANZAPINE
     Indication: PRODUCT USED FOR UNKNOWN INDICATION
     Dosage: (70 MG EN UNE PRISE (SOIT POSOLOGIE 1 SEMAINE))
     Route: 048
     Dates: start: 2018

REACTIONS (1)
  - Drug abuser [Recovered/Resolved]

NARRATIVE: CASE EVENT DATE: 2018
